FAERS Safety Report 9681821 (Version 1)
Quarter: 2013Q4

REPORT INFORMATION
  Report Type: Spontaneous
  Country: ES (occurrence: ES)
  Receive Date: 20131111
  Receipt Date: 20131111
  Transmission Date: 20140711
  Serious: Yes (Hospitalization)
  Sender: FDA-Public Use
  Company Number: ES-ROCHE-1297886

PATIENT
  Age: 62 Year
  Sex: Male

DRUGS (7)
  1. AVASTIN [Suspect]
     Indication: COLON CANCER STAGE IV
     Dosage: 25MG/ML CONCENTRATE FOR SOLUTION FOR INFUSION
     Route: 042
     Dates: start: 20130117, end: 20130117
  2. XELODA [Interacting]
     Indication: COLON CANCER STAGE IV
     Dosage: 500 MG FILM COATED TABLET
     Route: 048
     Dates: start: 20130117, end: 20130131
  3. OXALIPLATIN [Interacting]
     Indication: COLON CANCER STAGE IV
     Route: 042
     Dates: start: 20130117, end: 20130117
  4. ALDACTONE (SPAIN) [Concomitant]
     Indication: ASCITES
     Dosage: 100 MG FILM COATED TABLET
     Route: 048
     Dates: start: 20130117, end: 20130228
  5. FORTECORTIN (SPAIN) [Concomitant]
     Indication: COLON CANCER STAGE IV
     Route: 048
     Dates: start: 20130117, end: 20130121
  6. FORTECORTIN (SPAIN) [Concomitant]
     Route: 048
     Dates: start: 20130122, end: 20130228
  7. SEGURIL [Concomitant]
     Indication: ASCITES
     Route: 048
     Dates: start: 20130117, end: 20130228

REACTIONS (2)
  - Mononeuropathy multiplex [Recovering/Resolving]
  - Drug interaction [Unknown]
